FAERS Safety Report 6764357-9 (Version None)
Quarter: 2010Q2

REPORT INFORMATION
  Report Type: 
  Country: None (occurrence: None)
  Receive Date: 20100610
  Receipt Date: 20100601
  Transmission Date: 20101027
  Serious: Yes (Hospitalization)
  Sender: FDA-Public Use
  Company Number: FR-PFIZER INC-2010068267

PATIENT
  Age: 97 Year
  Sex: Male

DRUGS (4)
  1. TRIFLUCAN [Suspect]
     Indication: FUNGAL INFECTION
     Dosage: 50 MG/DAY
     Route: 048
     Dates: start: 20090625
  2. ARIXTRA [Suspect]
     Dosage: 1 DF/DAY
     Route: 058
     Dates: start: 20090625, end: 20090701
  3. KARDEGIC [Suspect]
     Dosage: 75 MG/DAY
     Route: 048
     Dates: start: 20090625
  4. MYCOSTATIN [Suspect]
     Indication: FUNGAL INFECTION
     Dosage: UNK
     Route: 048
     Dates: start: 20090625

REACTIONS (1)
  - ABDOMINAL WALL HAEMATOMA [None]
